FAERS Safety Report 7348311-4 (Version None)
Quarter: 2011Q1

REPORT INFORMATION
  Report Type: 
  Country: None (occurrence: None)
  Receive Date: 20110311
  Receipt Date: 20110302
  Transmission Date: 20110831
  Serious: Yes (Other)
  Sender: FDA-Public Use
  Company Number: US-ELI_LILLY_AND_COMPANY-US201103001417

PATIENT
  Age: 85 Year
  Sex: Female

DRUGS (2)
  1. RECLAST [Concomitant]
  2. FORTEO [Suspect]
     Indication: OSTEOPOROSIS
     Dosage: UNK, UNKNOWN
     Route: 065
     Dates: start: 20070101, end: 20090101

REACTIONS (2)
  - FRACTURE [None]
  - BONE DENSITY DECREASED [None]
